FAERS Safety Report 14628237 (Version 1)
Quarter: 2018Q1

REPORT INFORMATION
  Report Type: Spontaneous
  Country: US (occurrence: US)
  Receive Date: 20180312
  Receipt Date: 20180312
  Transmission Date: 20180509
  Serious: No
  Sender: FDA-Public Use
  Company Number: US-ALLERGAN-1729119US

PATIENT
  Age: 82 Year
  Sex: Female
  Weight: 86.17 kg

DRUGS (1)
  1. ESTRACE [Suspect]
     Active Substance: ESTRADIOL
     Indication: SKIN ATROPHY
     Dosage: 1 MG, UNK
     Route: 067
     Dates: start: 20160616, end: 201608

REACTIONS (5)
  - Hypersensitivity [Unknown]
  - Burning sensation [Unknown]
  - Surgery [Unknown]
  - Vulvovaginal burning sensation [Unknown]
  - Vulvovaginal disorder [Unknown]

NARRATIVE: CASE EVENT DATE: 201708
